FAERS Safety Report 5107541-2 (Version None)
Quarter: 2006Q3

REPORT INFORMATION
  Report Type: 
  Country: None (occurrence: None)
  Receive Date: 20060913
  Receipt Date: 20060913
  Transmission Date: 20061208
  Serious: Yes (Other)
  Sender: FDA-Public Use
  Company Number: None

PATIENT
  Age: 2 Year
  Sex: Male
  Weight: 12.2 kg

DRUGS (1)
  1. IFOSFAMIDE [Suspect]
     Indication: NEUROBLASTOMA
     Dosage: 972 MG -1800 MG/M2- DAILY X 5 IV DRIP
     Route: 041

REACTIONS (4)
  - AGITATION [None]
  - COORDINATION ABNORMAL [None]
  - DYSKINESIA [None]
  - FATIGUE [None]
